FAERS Safety Report 4847028-5 (Version None)
Quarter: 2005Q4

REPORT INFORMATION
  Report Type: 
  Country: None (occurrence: None)
  Receive Date: 20051205
  Receipt Date: 20051121
  Transmission Date: 20060501
  Serious: Yes (Other)
  Sender: FDA-Public Use
  Company Number: 2005124812

PATIENT
  Age: 39 Year
  Sex: Female
  Weight: 50.8029 kg

DRUGS (11)
  1. NEURONTIN [Suspect]
     Indication: INTERVERTEBRAL DISC PROTRUSION
     Dosage: 1200 MG (300 MG, 4 IN 1 D), ORAL
     Route: 048
     Dates: start: 20021201
  2. FOSAMAX [Suspect]
     Indication: OSTEOPOROSIS
     Dosage: 78 MG 1 WK
     Dates: start: 20041101
  3. NIZATIDINE [Concomitant]
  4. VICODIN [Concomitant]
  5. VITAMINS (VITAMINS) [Concomitant]
  6. TRACE ELEMENTS (MINERALS NOS) [Concomitant]
  7. MORPHINE [Concomitant]
  8. XANAX [Concomitant]
  9. CALCIUM (CALCIUM) [Concomitant]
  10. VITAMIN D [Concomitant]
  11. ZANAFLEX [Concomitant]

REACTIONS (23)
  - AMNESIA [None]
  - ANXIETY DISORDER [None]
  - BACK PAIN [None]
  - DISTURBANCE IN ATTENTION [None]
  - DRUG WITHDRAWAL SYNDROME [None]
  - DYSKINESIA [None]
  - FORMICATION [None]
  - HYPERHIDROSIS [None]
  - HYPOAESTHESIA [None]
  - IRRITABILITY [None]
  - MENOPAUSE [None]
  - MUSCLE TWITCHING [None]
  - NUCLEAR MAGNETIC RESONANCE IMAGING BRAIN ABNORMAL [None]
  - PAIN [None]
  - PAIN IN EXTREMITY [None]
  - PALPITATIONS [None]
  - PARAESTHESIA [None]
  - POST PROCEDURAL COMPLICATION [None]
  - RESTLESSNESS [None]
  - SURGICAL PROCEDURE REPEATED [None]
  - TOOTH DISORDER [None]
  - TREMOR [None]
  - WEIGHT DECREASED [None]
